FAERS Safety Report 8585710-7 (Version None)
Quarter: 2012Q3

REPORT INFORMATION
  Report Type: 
  Country: None (occurrence: None)
  Receive Date: 20120810
  Receipt Date: 20120807
  Transmission Date: 20120928
  Serious: Yes (Death)
  Sender: FDA-Public Use
  Company Number: JP-PFIZER INC-2012179037

PATIENT
  Age: 84 Year
  Sex: Male
  Weight: 51 kg

DRUGS (12)
  1. PROPOFOL [Concomitant]
     Indication: SEDATION
     Dosage: 500 MG
     Route: 042
     Dates: start: 20120715, end: 20120720
  2. DOPAMINE HCL [Concomitant]
     Indication: OEDEMA
  3. UNASYN [Suspect]
     Indication: PNEUMONIA
     Dosage: 1.5 G, 1X/DAY
     Route: 041
     Dates: start: 20120721
  4. SOLU-MEDROL [Concomitant]
     Dosage: 500 MG
     Route: 042
  5. FAMOTIDINE [Concomitant]
     Dosage: 20 MG
     Route: 042
  6. SODIUM BICARBONATE [Concomitant]
     Dosage: 250 MG
     Route: 042
  7. DOPAMINE HCL [Concomitant]
     Indication: URINE OUTPUT DECREASED
     Dosage: 3 ML, WEEKLY
     Route: 042
     Dates: start: 20120716, end: 20120720
  8. DORIPENEM MONOHYDRATE [Concomitant]
     Indication: PNEUMONIA
     Dosage: 0.25
     Route: 041
     Dates: start: 20120715, end: 20120720
  9. CATABON [Concomitant]
     Dosage: UNK
  10. ADRENALIN IN OIL INJ [Concomitant]
     Dosage: 1 MG
     Route: 042
  11. ATROPINE [Concomitant]
     Dosage: UNK
     Route: 042
  12. BISOLVON [Concomitant]
     Dosage: 4 MG
     Route: 042

REACTIONS (1)
  - BLOOD PRESSURE DECREASED [None]
